FAERS Safety Report 20813040 (Version 2)
Quarter: 2022Q2

REPORT INFORMATION
  Report Type: Spontaneous
  Country: US (occurrence: US)
  Receive Date: 20220511
  Receipt Date: 20220607
  Transmission Date: 20220721
  Serious: No
  Sender: FDA-Public Use
  Company Number: US-TEVA-2022-US-2027499

PATIENT
  Age: 74 Year
  Sex: Female

DRUGS (2)
  1. LORAZEPAM [Suspect]
     Active Substance: LORAZEPAM
     Indication: Product used for unknown indication
     Route: 065
  2. LORAZEPAM [Suspect]
     Active Substance: LORAZEPAM
     Route: 065
     Dates: start: 20220404

REACTIONS (8)
  - Heart rate abnormal [Unknown]
  - Blood pressure increased [Unknown]
  - Abdominal discomfort [Not Recovered/Not Resolved]
  - Diarrhoea [Unknown]
  - Eating disorder [Unknown]
  - Impaired work ability [Not Recovered/Not Resolved]
  - Drug hypersensitivity [Unknown]
  - Wrong technique in product usage process [Unknown]
